FAERS Safety Report 21212037 (Version 1)
Quarter: 2022Q3

REPORT INFORMATION
  Report Type: Spontaneous
  Country: CA (occurrence: CA)
  Receive Date: 20220815
  Receipt Date: 20220815
  Transmission Date: 20221027
  Serious: Yes (Hospitalization)
  Sender: FDA-Public Use
  Company Number: CA-PFIZER INC-202201056532

PATIENT
  Age: 86 Year
  Sex: Male

DRUGS (1)
  1. CELECOXIB [Suspect]
     Active Substance: CELECOXIB
     Route: 065

REACTIONS (3)
  - Duodenal ulcer [Unknown]
  - Haemoglobin abnormal [Unknown]
  - Melaena [Unknown]
